FAERS Safety Report 7339035-8 (Version None)
Quarter: 2011Q1

REPORT INFORMATION
  Report Type: 
  Country: None (occurrence: None)
  Receive Date: 20110308
  Receipt Date: 20110223
  Transmission Date: 20110831
  Serious: Yes (Hospitalization)
  Sender: FDA-Public Use
  Company Number: FR-ELI_LILLY_AND_COMPANY-FR201102007206

PATIENT
  Sex: Female

DRUGS (6)
  1. VALIUM [Concomitant]
     Indication: MENTAL DISORDER
     Dosage: 20 MG, 2/D
     Route: 048
  2. NOCTAMIDE [Concomitant]
     Dosage: 2 MG, DAILY (1/D)
     Route: 048
     Dates: end: 20090110
  3. ALCOHOL [Concomitant]
  4. ABILIFY [Concomitant]
     Indication: MENTAL DISORDER
     Route: 048
  5. CYMBALTA [Suspect]
     Dosage: 30 MG, DAILY (1/D)
     Dates: start: 20090116, end: 20090119
  6. CYMBALTA [Suspect]
     Dosage: 60 MG, DAILY (1/D)
     Route: 048
     Dates: start: 20080101, end: 20090116

REACTIONS (2)
  - CYTOLYTIC HEPATITIS [None]
  - ALCOHOLISM [None]
